FAERS Safety Report 4866795-8 (Version None)
Quarter: 2005Q4

REPORT INFORMATION
  Report Type: 
  Country: None (occurrence: None)
  Receive Date: 20051222
  Receipt Date: 20051214
  Transmission Date: 20060501
  Serious: Yes (Life-Threatening, Hospitalization)
  Sender: FDA-Public Use
  Company Number: 2005169390

PATIENT
  Age: 50 Year
  Sex: Male

DRUGS (3)
  1. AMLODIPINE [Suspect]
     Indication: ANGINA PECTORIS
     Dosage: 10 MG
  2. ARTHROTEC [Suspect]
     Indication: OSTEOARTHRITIS
     Dosage: 75 MG
  3. ATENOLOL [Suspect]
     Indication: ANGINA PECTORIS
     Dosage: 50 MG

REACTIONS (18)
  - ALANINE AMINOTRANSFERASE INCREASED [None]
  - ATRIOVENTRICULAR BLOCK COMPLETE [None]
  - BACK PAIN [None]
  - BLOOD ALKALINE PHOSPHATASE INCREASED [None]
  - BRADYCARDIA [None]
  - CARDIOGENIC SHOCK [None]
  - DIZZINESS [None]
  - DRUG TOXICITY [None]
  - GAMMA-GLUTAMYLTRANSFERASE INCREASED [None]
  - HAEMODIALYSIS [None]
  - HEPATIC TRAUMA [None]
  - HYPERGLYCAEMIA [None]
  - HYPERKALAEMIA [None]
  - HYPOTENSION [None]
  - LARYNGEAL OEDEMA [None]
  - METABOLIC ACIDOSIS [None]
  - RENAL FAILURE ACUTE [None]
  - VASODILATATION [None]
